FAERS Safety Report 4281093-1 (Version None)
Quarter: 2004Q1

REPORT INFORMATION
  Report Type: 
  Country: None (occurrence: None)
  Receive Date: 20040127
  Receipt Date: 20040115
  Transmission Date: 20041129
  Serious: Yes (Hospitalization)
  Sender: FDA-Public Use
  Company Number: 2004-BP-00070BP (2)

PATIENT
  Age: 64 Year
  Sex: Male

DRUGS (8)
  1. MICARDIS [Suspect]
     Indication: CARDIOVASCULAR DISORDER
     Dates: start: 20030526
  2. MICARDIS [Suspect]
     Indication: CEREBROVASCULAR ACCIDENT
     Dates: start: 20030526
  3. MICARDIS [Suspect]
     Indication: PROPHYLAXIS
     Dates: start: 20030526
  4. RAMIPRIL [Suspect]
     Indication: CARDIOVASCULAR DISORDER
     Dates: start: 20030526
  5. RAMIPRIL [Suspect]
     Indication: CEREBROVASCULAR ACCIDENT
     Dates: start: 20030526
  6. RAMIPRIL [Suspect]
     Indication: PROPHYLAXIS
     Dates: start: 20030526
  7. FUROSEMIDE [Concomitant]
  8. CARBONATE OF CALCIUM [Concomitant]

REACTIONS (1)
  - RENAL FAILURE CHRONIC [None]
